FAERS Safety Report 18575438 (Version 2)
Quarter: 2025Q1

REPORT INFORMATION
  Report Type: Spontaneous
  Country: CA (occurrence: CA)
  Receive Date: 20201203
  Receipt Date: 20250207
  Transmission Date: 20250408
  Serious: Yes (Other)
  Sender: SANOFI AVENTIS
  Company Number: CA-SA-2020SA342097

PATIENT
  Sex: Male

DRUGS (4)
  1. LEFLUNOMIDE [Suspect]
     Active Substance: LEFLUNOMIDE
     Indication: Product used for unknown indication
     Dosage: UNK UNK, QW
     Route: 048
     Dates: start: 20160809, end: 201805
  2. METHOTREXATE [Suspect]
     Active Substance: METHOTREXATE
     Indication: Product used for unknown indication
     Route: 065
     Dates: start: 2018
  3. ETANERCEPT [Suspect]
     Active Substance: ETANERCEPT
     Indication: Ankylosing spondylitis
     Route: 058
     Dates: start: 20190826
  4. HUMIRA [Concomitant]
     Active Substance: ADALIMUMAB
     Indication: Product used for unknown indication
     Route: 058
     Dates: start: 201805

REACTIONS (17)
  - Arthropathy [Unknown]
  - Bone erosion [Unknown]
  - Bone marrow oedema [Unknown]
  - C-reactive protein increased [Unknown]
  - Cartilage injury [Unknown]
  - Exostosis [Unknown]
  - Inflammation [Unknown]
  - Intervertebral disc degeneration [Unknown]
  - Intervertebral disc space narrowing [Unknown]
  - Joint effusion [Unknown]
  - Muscle oedema [Unknown]
  - Osteolysis [Unknown]
  - Soft tissue inflammation [Unknown]
  - Spinal osteoarthritis [Unknown]
  - Rheumatoid arthritis [Unknown]
  - Tendon disorder [Unknown]
  - Treatment failure [Unknown]
